FAERS Safety Report 22282611 (Version 2)
Quarter: 2023Q2

REPORT INFORMATION
  Report Type: Other
  Country: US (occurrence: None)
  Receive Date: 20230504
  Receipt Date: 20230509
  Transmission Date: 20230722
  Serious: Yes (Other)
  Sender: FDA-Public Use
  Company Number: US-ROCHE-3340371

PATIENT
  Age: 66 Year
  Sex: Female
  Weight: 56.296 kg

DRUGS (11)
  1. OCREVUS [Suspect]
     Active Substance: OCRELIZUMAB
     Indication: Multiple sclerosis
     Dosage: THEN 600 MG EVERY 6 MONTHS
     Route: 042
     Dates: start: 20190606, end: 2020
  2. METHYLPREDNISOLONE [Concomitant]
     Active Substance: METHYLPREDNISOLONE
     Dosage: 100 MG IV 30 MIN PRIOR TO INFUSION
  3. DIPHENHYDRAMINE [Concomitant]
     Active Substance: DIPHENHYDRAMINE
     Dosage: 50 MG IV 30 MIN PRIOR TO INFUSION
  4. ACETAMINOPHEN [Concomitant]
     Active Substance: ACETAMINOPHEN
     Dosage: 650 MG PO
  5. SUMATRIPTAN SUCCINATE [Concomitant]
     Active Substance: SUMATRIPTAN SUCCINATE
     Dosage: 100 MG TABLET TWO TIMES DAILY AS NEEDED
  6. VITAMIN D3 [Concomitant]
     Active Substance: CHOLECALCIFEROL
     Dosage: 1.25 MG TABLET
  7. TRAMADOL HCL [Concomitant]
     Active Substance: TRAMADOL HYDROCHLORIDE
     Dosage: 50 MG TABLET TWICE DAILY AS NEEDED
  8. LOSARTAN POTASSIUM [Concomitant]
     Active Substance: LOSARTAN POTASSIUM
     Dosage: 50-12.5 MG TABLET ORAL
  9. METHENAMINE HIPPURATE [Concomitant]
     Active Substance: METHENAMINE HIPPURATE
     Dosage: 1 GM TABLET TWICE DAILY ORAL
  10. ALPHAGAN P [Concomitant]
     Active Substance: BRIMONIDINE TARTRATE
     Dosage: 0.1 % SOLUTION OPHTHALMIC
  11. LATANOPROST [Concomitant]
     Active Substance: LATANOPROST
     Dosage: 0.005 % SOLUTION OPHTHALMIC

REACTIONS (12)
  - Urinary tract infection [Unknown]
  - COVID-19 [Unknown]
  - Nitrite urine present [Unknown]
  - White blood cell disorder [Unknown]
  - Muscular weakness [Unknown]
  - Migraine [Unknown]
  - Back pain [Unknown]
  - Joint stiffness [Unknown]
  - Arthralgia [Unknown]
  - Balance disorder [Unknown]
  - Gait disturbance [Unknown]
  - Headache [Unknown]
